FAERS Safety Report 26164506 (Version 1)
Quarter: 2025Q4

REPORT INFORMATION
  Report Type: Spontaneous
  Country: US (occurrence: US)
  Receive Date: 20251216
  Receipt Date: 20251216
  Transmission Date: 20260117
  Serious: No
  Sender: LIQUIDIA TECHNOLOGIES
  Company Number: US-LIQUIDIA TECHNOLOGIES, INC.-LIQ-2025-000550

PATIENT

DRUGS (2)
  1. YUTREPIA [Suspect]
     Active Substance: TREPROSTINIL SODIUM
     Indication: Pulmonary arterial hypertension
     Dosage: 106 MICROGRAMS, QID (INHALE 2 BREATHS PER CAPSULE)
     Route: 055
     Dates: start: 202508
  2. TYVASO [Suspect]
     Active Substance: TREPROSTINIL
     Indication: Pulmonary hypertension
     Dosage: 18 MICROGRAM, QID
     Route: 055

REACTIONS (2)
  - Cough [Unknown]
  - Headache [Recovered/Resolved]

NARRATIVE: CASE EVENT DATE: 20250101
